FAERS Safety Report 4882787-7 (Version None)
Quarter: 2006Q1

REPORT INFORMATION
  Report Type: 
  Country: None (occurrence: None)
  Receive Date: 20060117
  Receipt Date: 20060105
  Transmission Date: 20060701
  Serious: Yes (Hospitalization, Disabling)
  Sender: FDA-Public Use
  Company Number: US-MERCK-0601USA00657

PATIENT
  Age: 58 Year
  Sex: Male
  Weight: 91 kg

DRUGS (6)
  1. VIOXX [Suspect]
     Indication: PAIN IN EXTREMITY
     Route: 048
     Dates: start: 19991022, end: 20031101
  2. VIOXX [Suspect]
     Indication: GOUT
     Route: 048
     Dates: start: 19991022, end: 20031101
  3. TOPROL-XL [Concomitant]
     Indication: HYPERTENSION
     Route: 048
     Dates: start: 19970101
  4. PRILOSEC [Concomitant]
     Indication: BARRETT'S OESOPHAGUS
     Route: 048
  5. PROPULSID [Concomitant]
     Indication: ABDOMINAL DISCOMFORT
     Route: 065
  6. ASPIRIN [Concomitant]
     Indication: PROPHYLAXIS
     Route: 065
     Dates: start: 19980101

REACTIONS (11)
  - BLOOD CHOLESTEROL INCREASED [None]
  - CARDIAC FAILURE CONGESTIVE [None]
  - CAROTID ARTERY OCCLUSION [None]
  - CEREBROVASCULAR ACCIDENT [None]
  - CORONARY ARTERY DISEASE [None]
  - EYE HAEMORRHAGE [None]
  - GASTROINTESTINAL DISORDER [None]
  - HEART RATE IRREGULAR [None]
  - MYOCARDIAL INFARCTION [None]
  - PANIC DISORDER [None]
  - SLEEP APNOEA SYNDROME [None]
